FAERS Safety Report 10694827 (Version 3)
Quarter: 2015Q1

REPORT INFORMATION
  Report Type: Report from Study
  Country: CA (occurrence: CA)
  Receive Date: 20150107
  Receipt Date: 20150324
  Transmission Date: 20150721
  Serious: Yes (Hospitalization)
  Sender: FDA-Public Use
  Company Number: PHHY2014CA170952

PATIENT
  Sex: Female

DRUGS (2)
  1. SANDOSTATIN [Suspect]
     Active Substance: OCTREOTIDE ACETATE
     Indication: ENTEROCUTANEOUS FISTULA
     Dosage: UNK UG, TID
     Route: 058
     Dates: start: 201409, end: 2014
  2. SANDOSTATIN LAR DEPOT [Suspect]
     Active Substance: OCTREOTIDE ACETATE
     Indication: ENTEROCUTANEOUS FISTULA
     Dosage: 20 MG, QMO
     Route: 030
     Dates: start: 20141106

REACTIONS (5)
  - Product use issue [Unknown]
  - Hypotension [Unknown]
  - Syncope [Unknown]
  - Communication disorder [Unknown]
  - Somnolence [Unknown]
